FAERS Safety Report 17317242 (Version 3)
Quarter: 2022Q2

REPORT INFORMATION
  Report Type: Spontaneous
  Country: US (occurrence: US)
  Receive Date: 20200124
  Receipt Date: 20220518
  Transmission Date: 20220721
  Serious: No
  Sender: FDA-Public Use
  Company Number: US-PFIZER INC-2020030067

PATIENT
  Age: 39 Year
  Sex: Female
  Weight: 56.25 kg

DRUGS (4)
  1. AROMASIN [Suspect]
     Active Substance: EXEMESTANE
     Indication: Breast cancer female
     Dosage: 25 MG, DAILY
     Route: 048
     Dates: start: 2014
  2. AROMASIN [Suspect]
     Active Substance: EXEMESTANE
     Indication: Breast cancer stage I
  3. LOSARTAN [Concomitant]
     Active Substance: LOSARTAN
     Indication: Blood pressure abnormal
     Dosage: 25 MG, DAILY
     Dates: start: 201911
  4. PRAVASTATIN [Concomitant]
     Active Substance: PRAVASTATIN
     Indication: Blood cholesterol abnormal
     Dosage: 20 MG, DAILY
     Dates: start: 2018

REACTIONS (8)
  - Product dose omission issue [Unknown]
  - Incorrect product administration duration [Unknown]
  - Off label use [Unknown]
  - Bone loss [Unknown]
  - Pain in extremity [Unknown]
  - Back pain [Not Recovered/Not Resolved]
  - Dysstasia [Unknown]
  - Arthralgia [Not Recovered/Not Resolved]

NARRATIVE: CASE EVENT DATE: 20140101
